FAERS Safety Report 9245876 (Version 2)
Quarter: 2013Q2

REPORT INFORMATION
  Report Type: Spontaneous
  Country: CA (occurrence: CA)
  Receive Date: 20130422
  Receipt Date: 20130424
  Transmission Date: 20140414
  Serious: Yes (Hospitalization, Other)
  Sender: FDA-Public Use
  Company Number: CA-PFIZER INC-2013119158

PATIENT
  Age: 13 Year
  Sex: Female
  Weight: 57 kg

DRUGS (3)
  1. EPINEPHRINE [Suspect]
     Dosage: 0.175 MG/KG, (10 ML OF 1: 1000)
     Route: 058
  2. NITROGLYCERIN [Suspect]
     Indication: HYPERTENSION
     Dosage: UNK
     Route: 062
  3. NITROGLYCERIN [Suspect]
     Dosage: 2 UG/MIN

REACTIONS (9)
  - Wrong drug administered [Recovered/Resolved]
  - Accidental overdose [Recovered/Resolved]
  - Cardiac failure [Recovered/Resolved]
  - Supraventricular tachycardia [Recovered/Resolved]
  - Hypertension [Recovered/Resolved]
  - Acute pulmonary oedema [Recovered/Resolved]
  - Hypotension [Recovered/Resolved]
  - Sinus tachycardia [Recovered/Resolved]
  - Myocardial ischaemia [Recovered/Resolved]
